FAERS Safety Report 6075463-9 (Version None)
Quarter: 2009Q1

REPORT INFORMATION
  Report Type: 
  Country: None (occurrence: None)
  Receive Date: 20090212
  Receipt Date: 20090209
  Transmission Date: 20090719
  Serious: Yes (Life-Threatening, Hospitalization)
  Sender: FDA-Public Use
  Company Number: B0526445B

PATIENT
  Age: 58 Year
  Sex: Male
  Weight: 68.5 kg

DRUGS (7)
  1. LAPATINIB [Suspect]
     Route: 048
     Dates: start: 20080826
  2. RADIOTHERAPY [Suspect]
     Dosage: 48000GY CUMULATIVE DOSE
     Dates: start: 20080826
  3. CARBOPLATIN [Suspect]
     Route: 042
     Dates: start: 20080826
  4. FRAXODI [Concomitant]
     Indication: DEEP VEIN THROMBOSIS
     Dosage: .8MCL PER DAY
     Route: 058
     Dates: start: 20080610
  5. DURAGESIC-100 [Concomitant]
     Indication: PAIN
     Dates: start: 20080909
  6. DAFALGAN [Concomitant]
     Indication: PAIN
     Dosage: 4G FOUR TIMES PER DAY
     Route: 048
     Dates: start: 20080901
  7. SACCHAROMYCES BOULARDII [Concomitant]
     Dosage: 1SAC PER DAY
     Route: 048
     Dates: start: 20080916

REACTIONS (4)
  - DYSPHAGIA [None]
  - LEUKOPENIA [None]
  - PYREXIA [None]
  - SEPTIC SHOCK [None]
